FAERS Safety Report 5031589-X (Version None)
Quarter: 2006Q2

REPORT INFORMATION
  Report Type: 
  Country: None (occurrence: None)
  Receive Date: 20060621
  Receipt Date: 20060615
  Transmission Date: 20061013
  Serious: Yes (Hospitalization)
  Sender: FDA-Public Use
  Company Number: SE-GLAXOSMITHKLINE-B0428176A

PATIENT
  Sex: Female

DRUGS (1)
  1. AVANDAMET [Suspect]

REACTIONS (2)
  - CONSTIPATION [None]
  - INTESTINAL FISTULA [None]
